FAERS Safety Report 7238460-3 (Version None)
Quarter: 2011Q1

REPORT INFORMATION
  Report Type: 
  Country: None (occurrence: None)
  Receive Date: 20110121
  Receipt Date: 20110113
  Transmission Date: 20110831
  Serious: Yes (Other)
  Sender: FDA-Public Use
  Company Number: US-JNJFOC-20100600835

PATIENT
  Sex: Male

DRUGS (5)
  1. LEVAQUIN [Suspect]
     Indication: SINUSITIS
     Route: 048
  2. PREDNISONE [Suspect]
     Indication: PRODUCT USED FOR UNKNOWN INDICATION
     Route: 065
  3. LEVAQUIN [Suspect]
     Indication: PNEUMONIA
     Route: 048
  4. LEVAQUIN [Suspect]
     Indication: UPPER RESPIRATORY TRACT INFECTION
     Route: 048
  5. LEVAQUIN [Suspect]
     Indication: BACTERIAL INFECTION
     Route: 048

REACTIONS (3)
  - TENDON INJURY [None]
  - CELLULITIS [None]
  - ARTHRALGIA [None]
